FAERS Safety Report 16798448 (Version 1)
Quarter: 2019Q3

REPORT INFORMATION
  Report Type: Spontaneous
  Country: US (occurrence: US)
  Receive Date: 20190722
  Receipt Date: 20190722
  Transmission Date: 20191005
  Serious: No
  Sender: FDA-Public Use
  Company Number: None

PATIENT
  Age: 36 Year
  Sex: Male
  Weight: 119.29 kg

DRUGS (1)
  1. BUPRENORPHINE/NALOXONE [Suspect]
     Active Substance: BUPRENORPHINE\NALOXONE
     Indication: DRUG DEPENDENCE
     Dosage: ?          OTHER DOSE:8/2 SSL FILM;?
     Route: 060
     Dates: start: 20190329

REACTIONS (5)
  - Hypoaesthesia [None]
  - Paraesthesia ear [None]
  - Headache [None]
  - Paraesthesia oral [None]
  - Urticaria [None]

NARRATIVE: CASE EVENT DATE: 20190329
